FAERS Safety Report 16899074 (Version 1)
Quarter: 2019Q4

REPORT INFORMATION
  Report Type: Spontaneous
  Country: US (occurrence: US)
  Receive Date: 20191009
  Receipt Date: 20191009
  Transmission Date: 20200122
  Serious: No
  Sender: FDA-Public Use
  Company Number: US-FAGRON STERILE SERVICES-2075454

PATIENT

DRUGS (1)
  1. LIDOCAINE 1%/ PHENYLEPHRINE 1.5% IN BSS PF/SF SOLUTION FOR INJECTION [Suspect]
     Active Substance: LIDOCAINE\PHENYLEPHRINE
     Route: 031
     Dates: start: 20190412, end: 20190412

REACTIONS (1)
  - Vision blurred [Recovered/Resolved]
